FAERS Safety Report 6810310-6 (Version None)
Quarter: 2010Q2

REPORT INFORMATION
  Report Type: 
  Country: None (occurrence: None)
  Receive Date: 20100630
  Receipt Date: 20100628
  Transmission Date: 20101027
  Serious: Yes (Death)
  Sender: FDA-Public Use
  Company Number: US-CELGENEUS-163-21880-10062945

PATIENT
  Sex: Male

DRUGS (3)
  1. REVLIMID [Suspect]
     Indication: MULTIPLE MYELOMA
     Route: 048
     Dates: start: 20100601, end: 20100101
  2. REVLIMID [Suspect]
     Route: 048
     Dates: start: 20100501
  3. REVLIMID [Suspect]
     Route: 048
     Dates: start: 20080601

REACTIONS (1)
  - MULTIPLE MYELOMA [None]
